FAERS Safety Report 9693617 (Version 3)
Quarter: 2014Q1

REPORT INFORMATION
  Report Type: Spontaneous
  Country: US (occurrence: US)
  Receive Date: 20131118
  Receipt Date: 20140109
  Transmission Date: 20141002
  Serious: Yes (Other)
  Sender: FDA-Public Use
  Company Number: US-TEVA-444745USA

PATIENT
  Age: 31 Year
  Sex: Female
  Weight: 51.3 kg

DRUGS (1)
  1. PARAGARD 380A [Suspect]
     Indication: CONTRACEPTION
     Dates: start: 2008, end: 20131111

REACTIONS (2)
  - Device breakage [Recovered/Resolved]
  - Medical device complication [Recovered/Resolved]
